FAERS Safety Report 10075079 (Version 1)
Quarter: 2014Q2

REPORT INFORMATION
  Report Type: Spontaneous
  Country: US (occurrence: US)
  Receive Date: 20140414
  Receipt Date: 20140414
  Transmission Date: 20141212
  Serious: No
  Sender: FDA-Public Use
  Company Number: US-BIOGENIDEC-2014BI029180

PATIENT
  Age: 74 Year
  Sex: Male

DRUGS (1)
  1. TECFIDERA [Suspect]
     Indication: MULTIPLE SCLEROSIS
     Route: 048
     Dates: start: 201308

REACTIONS (4)
  - Gait disturbance [Unknown]
  - Relapsing-remitting multiple sclerosis [Unknown]
  - Primary progressive multiple sclerosis [Unknown]
  - Flushing [Unknown]
